FAERS Safety Report 4682467-7 (Version None)
Quarter: 2005Q2

REPORT INFORMATION
  Report Type: 
  Country: None (occurrence: None)
  Receive Date: 20050602
  Receipt Date: 20050602
  Transmission Date: 20051028
  Serious: Yes (Other)
  Sender: FDA-Public Use
  Company Number: None

PATIENT
  Sex: Female

DRUGS (1)
  1. GABAPENTIN [Suspect]
     Indication: VULVOVAGINAL DISCOMFORT
     Dosage: 300 MG CAP

REACTIONS (3)
  - CONDITION AGGRAVATED [None]
  - VAGINAL CANDIDIASIS [None]
  - VULVOVAGINAL DISCOMFORT [None]
